FAERS Safety Report 8166519-5 (Version None)
Quarter: 2012Q1

REPORT INFORMATION
  Report Type: 
  Country: None (occurrence: None)
  Receive Date: 20120227
  Receipt Date: 20111006
  Transmission Date: 20120608
  Serious: Yes (Other)
  Sender: FDA-Public Use
  Company Number: US-MYLANLABS-2011S1021176

PATIENT
  Sex: Male

DRUGS (6)
  1. ACCUTANE [Suspect]
     Route: 048
     Dates: start: 20041001, end: 20050401
  2. AMNESTEEM [Suspect]
     Route: 048
     Dates: start: 20041001, end: 20050401
  3. CLARAVIS [Suspect]
     Indication: ACNE
     Route: 048
     Dates: start: 20030901, end: 20040301
  4. ACCUTANE [Suspect]
     Indication: ACNE
     Route: 048
     Dates: start: 20030901, end: 20040301
  5. CLARAVIS [Suspect]
     Route: 048
     Dates: start: 20041001, end: 20050401
  6. AMNESTEEM [Suspect]
     Indication: ACNE
     Route: 048
     Dates: start: 20030901, end: 20040301

REACTIONS (2)
  - COLITIS ULCERATIVE [None]
  - INFLAMMATORY BOWEL DISEASE [None]
